FAERS Safety Report 6137105-3 (Version None)
Quarter: 2009Q1

REPORT INFORMATION
  Report Type: 
  Country: None (occurrence: None)
  Receive Date: 20090330
  Receipt Date: 20090318
  Transmission Date: 20090719
  Serious: Yes (Hospitalization)
  Sender: FDA-Public Use
  Company Number: HU-ROCHE-535962

PATIENT
  Sex: Female
  Weight: 68.3 kg

DRUGS (15)
  1. RIBAVIRIN [Suspect]
     Dosage: DOSE BLINDED.
     Route: 048
     Dates: start: 20070830
  2. PEG-INTERFERON ALFA 2A (RO 25-8310) [Suspect]
     Dosage: DOSAGE BLINDED FOR FIRST TWELVE WEEKS.
     Route: 058
     Dates: start: 20070830
  3. HYDROCHLOROTHIAZIDE [Suspect]
     Indication: DRUG USE FOR UNKNOWN INDICATION
     Route: 065
     Dates: start: 20040726
  4. AMILORID [Suspect]
     Indication: DRUG USE FOR UNKNOWN INDICATION
     Route: 065
     Dates: start: 20040726
  5. NIFEDIPINE [Suspect]
     Indication: DRUG USE FOR UNKNOWN INDICATION
     Route: 065
     Dates: start: 20040726, end: 20071025
  6. METOPROLOL [Suspect]
     Indication: DRUG USE FOR UNKNOWN INDICATION
     Route: 065
     Dates: start: 20040726, end: 20071206
  7. FUROSEMID [Suspect]
     Indication: DRUG USE FOR UNKNOWN INDICATION
     Route: 065
     Dates: start: 20040726, end: 20071206
  8. ZOLPIDEM [Concomitant]
     Dates: start: 20050215
  9. PIRACETAM [Concomitant]
     Dates: start: 20030815
  10. ACETYLSALICYLIC ACID [Concomitant]
     Dates: start: 20000630
  11. ISOSORBIDE MONONITRATE [Concomitant]
     Dates: start: 20040726
  12. CLONAZEPAM [Concomitant]
     Dates: start: 19930630
  13. PRAVASTATIN [Concomitant]
     Dates: start: 20070727
  14. CARBAMAZEPINE [Concomitant]
     Dates: start: 19930630
  15. SERTRALINE HCL [Concomitant]
     Dates: start: 20050221

REACTIONS (1)
  - ANAEMIA [None]
